FAERS Safety Report 24754495 (Version 8)
Quarter: 2025Q3

REPORT INFORMATION
  Report Type: Spontaneous
  Country: US (occurrence: US)
  Receive Date: 20241219
  Receipt Date: 20250717
  Transmission Date: 20251021
  Serious: Yes (Other)
  Sender: PFIZER
  Company Number: US-PFIZER INC-202400325688

PATIENT
  Age: 81 Year
  Sex: Female

DRUGS (2)
  1. IBRANCE [Suspect]
     Active Substance: PALBOCICLIB
     Indication: Breast cancer stage IV
  2. IBRANCE [Suspect]
     Active Substance: PALBOCICLIB

REACTIONS (7)
  - Breast cancer stage IV [Unknown]
  - Malignant neoplasm progression [Unknown]
  - Metastases to chest wall [Unknown]
  - Metastases to bone [Unknown]
  - Metastases to neck [Unknown]
  - Off label use [Unknown]
  - Diarrhoea [Recovering/Resolving]
